FAERS Safety Report 12942603 (Version 1)
Quarter: 2016Q4

REPORT INFORMATION
  Report Type: Spontaneous
  Country: HR (occurrence: HR)
  Receive Date: 20161114
  Receipt Date: 20161114
  Transmission Date: 20170207
  Serious: Yes (Hospitalization)
  Sender: FDA-Public Use
  Company Number: PHHY2016HR153219

PATIENT
  Age: 36 Year
  Sex: Female
  Weight: 68.5 kg

DRUGS (1)
  1. ZARZIO [Suspect]
     Active Substance: FILGRASTIM
     Indication: BREAST CANCER
     Dosage: 300 UG, QD
     Route: 058
     Dates: start: 20161009, end: 20161013

REACTIONS (7)
  - Retching [Recovered/Resolved]
  - Cough [Recovered/Resolved]
  - Nausea [Recovered/Resolved]
  - Throat irritation [Recovered/Resolved]
  - Abdominal distension [Recovered/Resolved]
  - Cough [Recovered/Resolved]
  - Oropharyngeal pain [Recovered/Resolved]

NARRATIVE: CASE EVENT DATE: 2016
